FAERS Safety Report 8309676-X (Version None)
Quarter: 2012Q2

REPORT INFORMATION
  Report Type: 
  Country: None (occurrence: None)
  Receive Date: 20120425
  Receipt Date: 20120410
  Transmission Date: 20120825
  Serious: Yes (Hospitalization)
  Sender: FDA-Public Use
  Company Number: PL-CELGENEUS-129-21880-12042398

PATIENT

DRUGS (9)
  1. RAMIPRIL [Concomitant]
     Route: 065
     Dates: start: 20100601
  2. ELOTUZUMAB [Suspect]
     Indication: MULTIPLE MYELOMA
     Route: 065
  3. INSULIN [Concomitant]
     Route: 065
     Dates: start: 20060101
  4. KETOPROFEN [Concomitant]
     Route: 065
     Dates: start: 20101104
  5. REVLIMID [Suspect]
     Indication: MULTIPLE MYELOMA
     Route: 048
  6. PAMIDRONATE DISODIUM [Concomitant]
     Route: 065
     Dates: start: 20090801
  7. DEXAMETHASONE [Suspect]
     Indication: MULTIPLE MYELOMA
     Route: 065
  8. ACID ACETYLSALICYLIC [Concomitant]
     Route: 065
     Dates: start: 20120321
  9. OMEPRAZOLE [Concomitant]
     Route: 065
     Dates: start: 20120321

REACTIONS (1)
  - HEMIPARESIS [None]
